FAERS Safety Report 10050261 (Version 1)
Quarter: 2014Q2

REPORT INFORMATION
  Report Type: Spontaneous
  Country: US (occurrence: US)
  Receive Date: 20140401
  Receipt Date: 20140401
  Transmission Date: 20141212
  Serious: Yes (Hospitalization, Other)
  Sender: FDA-Public Use
  Company Number: PHHY2014US035900

PATIENT
  Age: 46 Year
  Sex: Male

DRUGS (1)
  1. AMITRIPTYLINE [Suspect]

REACTIONS (8)
  - Mental status changes [Unknown]
  - Obsessive-compulsive disorder [Unknown]
  - Time perception altered [Unknown]
  - Euphoric mood [Unknown]
  - Confusional state [Unknown]
  - Hallucination [Unknown]
  - Drug abuse [Unknown]
  - Overdose [Unknown]
